FAERS Safety Report 6497297-3 (Version None)
Quarter: 2009Q4

REPORT INFORMATION
  Report Type: 
  Country: None (occurrence: None)
  Receive Date: 20091215
  Receipt Date: 20090820
  Transmission Date: 20100525
  Serious: No
  Sender: FDA-Public Use
  Company Number: A0803299A

PATIENT
  Age: 72 Year
  Sex: Male

DRUGS (6)
  1. AVODART [Suspect]
     Indication: BENIGN PROSTATIC HYPERPLASIA
     Dosage: 1TAB PER DAY
     Route: 048
     Dates: start: 20080701, end: 20090701
  2. LIPITOR [Concomitant]
  3. DOXAZOSIN [Concomitant]
  4. ZESTRIL [Concomitant]
  5. HYDROCHLOROTHIAZIDE [Concomitant]
  6. ALLOPURINOL [Concomitant]

REACTIONS (3)
  - BREAST ENLARGEMENT [None]
  - BREAST MASS [None]
  - BREAST TENDERNESS [None]
